FAERS Safety Report 6530458-3 (Version None)
Quarter: 2010Q1

REPORT INFORMATION
  Report Type: 
  Country: None (occurrence: None)
  Receive Date: 20100106
  Receipt Date: 20100106
  Transmission Date: 20100710
  Serious: Yes (Hospitalization, Disabling, Other)
  Sender: FDA-Public Use
  Company Number: None

PATIENT
  Age: 36 Year
  Sex: Female
  Weight: 56.6996 kg

DRUGS (1)
  1. CIPROFLOXACIN [Suspect]
     Indication: URINARY TRACT INFECTION
     Dosage: 500MG 2 X DAILY ORAL
     Route: 048
     Dates: start: 20091123, end: 20091126

REACTIONS (3)
  - IMPAIRED WORK ABILITY [None]
  - MUSCULAR WEAKNESS [None]
  - STEVENS-JOHNSON SYNDROME [None]
